FAERS Safety Report 4325983-X (Version None)
Quarter: 2004Q1

REPORT INFORMATION
  Report Type: 
  Country: None (occurrence: None)
  Receive Date: 20040329
  Receipt Date: 20040316
  Transmission Date: 20041129
  Serious: Yes (Hospitalization)
  Sender: FDA-Public Use
  Company Number: FR-GLAXOSMITHKLINE-B0326940A

PATIENT
  Age: 30 Year
  Sex: Female

DRUGS (3)
  1. NABUMETONE [Suspect]
     Indication: BACK PAIN
     Dosage: 1G PER DAY
     Route: 048
     Dates: start: 20040108, end: 20040111
  2. PARECOXIB SODIUM [Suspect]
     Route: 042
     Dates: start: 20040107
  3. SPASMINE [Concomitant]
     Dates: start: 20030919, end: 20040112

REACTIONS (10)
  - ANOREXIA [None]
  - BACK PAIN [None]
  - BLOOD CREATININE INCREASED [None]
  - BLOOD PRESSURE INCREASED [None]
  - C-REACTIVE PROTEIN INCREASED [None]
  - HEADACHE [None]
  - PALLOR [None]
  - RED BLOOD CELL SEDIMENTATION RATE INCREASED [None]
  - RENAL HYPERTROPHY [None]
  - VOMITING [None]
